FAERS Safety Report 15930566 (Version 2)
Quarter: 2019Q1

REPORT INFORMATION
  Report Type: Spontaneous
  Country: DE (occurrence: DE)
  Receive Date: 20190207
  Receipt Date: 20190324
  Transmission Date: 20190417
  Serious: Yes (Other)
  Sender: FDA-Public Use
  Company Number: DE-ROCHE-2258691

PATIENT
  Age: 27 Year
  Sex: Male
  Weight: 90 kg

DRUGS (1)
  1. OCREVUS [Suspect]
     Active Substance: OCRELIZUMAB
     Indication: RELAPSING-REMITTING MULTIPLE SCLEROSIS
     Route: 042
     Dates: start: 201806

REACTIONS (3)
  - Neck pain [Unknown]
  - Meningitis viral [Recovering/Resolving]
  - Nasopharyngitis [Unknown]

NARRATIVE: CASE EVENT DATE: 20190131
